FAERS Safety Report 25124723 (Version 1)
Quarter: 2025Q1

REPORT INFORMATION
  Report Type: Spontaneous
  Country: US (occurrence: None)
  Receive Date: 20250325
  Receipt Date: 20250325
  Transmission Date: 20250408
  Serious: Yes (Other)
  Sender: FDA-CTU
  Company Number: None

PATIENT
  Age: 29 Year
  Sex: Female
  Weight: 65.25 kg

DRUGS (3)
  1. METOCLOPRAMIDE [Suspect]
     Active Substance: METOCLOPRAMIDE
     Indication: Morning sickness
     Dosage: 1 TABLET EVERY 6 HOURS ORAL ?
     Route: 048
     Dates: start: 20250312, end: 20250314
  2. DAILY PRENATAL VITAMIN [Concomitant]
  3. TYLENOL [Concomitant]
     Active Substance: ACETAMINOPHEN

REACTIONS (5)
  - Vomiting [None]
  - Vision blurred [None]
  - Muscle twitching [None]
  - Muscle contractions involuntary [None]
  - Trismus [None]

NARRATIVE: CASE EVENT DATE: 20250314
